FAERS Safety Report 9381314 (Version 2)
Quarter: 2014Q2

REPORT INFORMATION
  Report Type: Report from Study
  Country: CA (occurrence: CA)
  Receive Date: 20130703
  Receipt Date: 20140529
  Transmission Date: 20141212
  Serious: Yes (Other)
  Sender: FDA-Public Use
  Company Number: CA-JNJFOC-20130615780

PATIENT
  Age: 38 Year
  Sex: Male
  Weight: 91.3 kg

DRUGS (5)
  1. REMICADE [Suspect]
     Indication: CROHN^S DISEASE
     Dosage: 3RD INFUSION
     Route: 042
     Dates: start: 20130516
  2. REMICADE [Suspect]
     Indication: CROHN^S DISEASE
     Route: 042
     Dates: start: 20140424
  3. REMICADE [Suspect]
     Indication: CROHN^S DISEASE
     Route: 042
     Dates: start: 201306
  4. REMICADE [Suspect]
     Indication: CROHN^S DISEASE
     Dosage: FIRST DOSE
     Route: 042
     Dates: start: 20130404
  5. IMURAN [Suspect]
     Indication: PRODUCT USED FOR UNKNOWN INDICATION
     Dosage: SUMMER 2013
     Route: 065
     Dates: start: 2013

REACTIONS (8)
  - Thrombosis [Unknown]
  - Cytomegalovirus infection [Unknown]
  - Intestinal obstruction [Unknown]
  - Drug ineffective [Unknown]
  - Confusional state [Unknown]
  - Disturbance in attention [Unknown]
  - Nausea [Unknown]
  - Asthenia [Unknown]
